FAERS Safety Report 8081939-5 (Version None)
Quarter: 2012Q1

REPORT INFORMATION
  Report Type: 
  Country: None (occurrence: None)
  Receive Date: 20120130
  Receipt Date: 20110218
  Transmission Date: 20120608
  Serious: No
  Sender: FDA-Public Use
  Company Number: US-ABBOTT-11P-163-0707634-00

PATIENT
  Sex: Male
  Weight: 128.48 kg

DRUGS (1)
  1. LUPRON DEPOT [Suspect]
     Indication: PROSTATE CANCER
     Route: 030
     Dates: start: 20081001, end: 20090101

REACTIONS (5)
  - BLOOD GLUCOSE INCREASED [None]
  - HOT FLUSH [None]
  - BREAST ENLARGEMENT [None]
  - NIGHT SWEATS [None]
  - PENIS DISORDER [None]
